FAERS Safety Report 16032189 (Version 2)
Quarter: 2020Q2

REPORT INFORMATION
  Report Type: Report from Study
  Country: AU (occurrence: AU)
  Receive Date: 20190304
  Receipt Date: 20200403
  Transmission Date: 20200713
  Serious: Yes (Hospitalization)
  Sender: FDA-Public Use
  Company Number: AU-BIOGEN-2019BI00700174

PATIENT
  Age: 48 Year
  Sex: Female

DRUGS (1)
  1. TECFIDERA [Suspect]
     Active Substance: DIMETHYL FUMARATE
     Indication: MULTIPLE SCLEROSIS
     Dosage: MAINTENANCE DOSE
     Route: 050
     Dates: start: 20150401, end: 20200228

REACTIONS (6)
  - Multiple sclerosis [Not Recovered/Not Resolved]
  - Frustration tolerance decreased [Unknown]
  - Uterine haemorrhage [Not Recovered/Not Resolved]
  - Delayed recovery from anaesthesia [Recovered/Resolved]
  - Female reproductive tract disorder [Unknown]
  - Ovarian cyst [Not Recovered/Not Resolved]

NARRATIVE: CASE EVENT DATE: 20190213
